FAERS Safety Report 5162808-7 (Version None)
Quarter: 2006Q4

REPORT INFORMATION
  Report Type: 
  Country: None (occurrence: None)
  Receive Date: 20061201
  Receipt Date: 20060816
  Transmission Date: 20070319
  Serious: Yes (Hospitalization, Disabling, Other)
  Sender: FDA-Public Use
  Company Number: US-GLAXOSMITHKLINE-A0616943A

PATIENT
  Age: 92 Year
  Sex: Female
  Weight: 59.1 kg

DRUGS (14)
  1. REQUIP [Suspect]
     Indication: MYOCLONUS
     Dosage: 1MG AT NIGHT
     Route: 048
     Dates: start: 20060810, end: 20060812
  2. ATENOLOL [Concomitant]
  3. PAXIL [Concomitant]
  4. NEXIUM [Concomitant]
  5. ACTONEL [Concomitant]
  6. CALCIUM [Concomitant]
  7. TYLENOL [Concomitant]
  8. LIPITOR [Concomitant]
     Dosage: 10MG PER DAY
     Route: 048
  9. PRILOSEC [Concomitant]
     Dosage: 20MG PER DAY
     Route: 048
  10. TENORMIN [Concomitant]
     Dosage: 25MG PER DAY
     Route: 048
  11. PROCRIT [Concomitant]
     Dosage: 10000UNIT AS REQUIRED
     Route: 042
  12. FERROUS SULFATE TAB [Concomitant]
     Dosage: 325MG PER DAY
     Route: 048
  13. AMBIEN [Concomitant]
     Dosage: 5MG AT NIGHT
  14. ALTACE [Concomitant]
     Dosage: 1.25MG PER DAY
     Route: 048

REACTIONS (9)
  - ARTHRALGIA [None]
  - ASTHENIA [None]
  - HEADACHE [None]
  - MUSCLE SPASMS [None]
  - MUSCULOSKELETAL PAIN [None]
  - NECK PAIN [None]
  - PAIN IN EXTREMITY [None]
  - POLYMYALGIA RHEUMATICA [None]
  - SPINAL COLUMN STENOSIS [None]
